FAERS Safety Report 16485141 (Version 1)
Quarter: 2019Q2

REPORT INFORMATION
  Report Type: Spontaneous
  Country: FR (occurrence: FR)
  Receive Date: 20190627
  Receipt Date: 20190627
  Transmission Date: 20190711
  Serious: Yes (Hospitalization)
  Sender: FDA-Public Use
  Company Number: FR-MYLANLABS-2019M1059855

PATIENT
  Age: 3 Year
  Sex: Female
  Weight: 16 kg

DRUGS (3)
  1. AMIKACINE MYLAN [Suspect]
     Active Substance: AMIKACIN
     Indication: PYREXIA
     Dosage: UNK
     Route: 042
     Dates: start: 20180429, end: 20180430
  2. AMBISOME [Suspect]
     Active Substance: AMPHOTERICIN B
     Indication: PYREXIA
     Dosage: UNK
     Route: 042
     Dates: start: 20180429, end: 20180430
  3. VANCOMYCINE MYLAN 250 MG, POUDRE POUR SOLUTION POUR PERFUSION (IV) [Suspect]
     Active Substance: VANCOMYCIN
     Indication: PYREXIA
     Dosage: UNK
     Route: 042
     Dates: start: 20180429, end: 20180430

REACTIONS (2)
  - Renal failure [Recovered/Resolved]
  - Oedema [Recovered/Resolved]

NARRATIVE: CASE EVENT DATE: 20180430
